FAERS Safety Report 5670960-X (Version None)
Quarter: 2008Q1

REPORT INFORMATION
  Report Type: 
  Country: None (occurrence: None)
  Receive Date: 20080313
  Receipt Date: 20080310
  Transmission Date: 20080703
  Serious: Yes (Disabling, Other)
  Sender: FDA-Public Use
  Company Number: 08032429

PATIENT
  Age: 7 Year
  Sex: Female

DRUGS (1)
  1. OVIDE [Suspect]
     Indication: LICE INFESTATION
     Dosage: TOPICAL
     Route: 061
     Dates: start: 20070301, end: 20070302

REACTIONS (5)
  - CEREBELLAR ATAXIA [None]
  - DIPLOPIA [None]
  - HEADACHE [None]
  - NAUSEA [None]
  - NYSTAGMUS [None]
